FAERS Safety Report 15304886 (Version 1)
Quarter: 2018Q3

REPORT INFORMATION
  Report Type: Spontaneous
  Country: GB (occurrence: GB)
  Receive Date: 20180822
  Receipt Date: 20180822
  Transmission Date: 20181010
  Serious: Yes (Other)
  Sender: FDA-Public Use
  Company Number: GB-SUN PHARMACEUTICAL INDUSTRIES LTD-2018R1-181842

PATIENT
  Age: 54 Year
  Sex: Male

DRUGS (1)
  1. RISPERIDONE. [Suspect]
     Active Substance: RISPERIDONE
     Indication: SCHIZOPHRENIA
     Dosage: UNK
     Route: 065

REACTIONS (33)
  - Musculoskeletal stiffness [Unknown]
  - Extrapyramidal disorder [Unknown]
  - Priapism [Unknown]
  - Dyskinesia [Unknown]
  - Nausea [Unknown]
  - Oropharyngeal pain [Unknown]
  - Pyrexia [Unknown]
  - Pain [Unknown]
  - Headache [Unknown]
  - Abdominal pain upper [Unknown]
  - Influenza like illness [Unknown]
  - Heart rate increased [Unknown]
  - Abnormal weight gain [Unknown]
  - Anxiety [Unknown]
  - Increased appetite [Unknown]
  - Chills [Unknown]
  - Heart rate irregular [Unknown]
  - Feeling of body temperature change [Unknown]
  - Dizziness [Unknown]
  - Cough [Unknown]
  - Vomiting [Unknown]
  - Epistaxis [Unknown]
  - Dry mouth [Unknown]
  - Diabetes mellitus inadequate control [Unknown]
  - Dysphagia [Unknown]
  - Tremor [Unknown]
  - Confusional state [Unknown]
  - Hyperhidrosis [Unknown]
  - Protrusion tongue [Unknown]
  - Restlessness [Unknown]
  - Fatigue [Unknown]
  - Somnolence [Unknown]
  - Blood glucose increased [Unknown]
